FAERS Safety Report 7155847-8 (Version None)
Quarter: 2010Q4

REPORT INFORMATION
  Report Type: 
  Country: None (occurrence: None)
  Receive Date: 20101123
  Receipt Date: 20100923
  Transmission Date: 20110411
  Serious: No
  Sender: FDA-Public Use
  Company Number: 011004

PATIENT
  Sex: Female
  Weight: 60.5 kg

DRUGS (5)
  1. CIMZIA [Suspect]
     Indication: CROHN'S DISEASE
     Dosage: 400 MG 1X/MONTH SUBCUTANEOUS
     Route: 058
     Dates: start: 20090701
  2. LISINOPRIL [Concomitant]
  3. TRICOR [Concomitant]
  4. MULTIVITAMIN [Concomitant]
  5. ERYTHROMYCIN [Concomitant]

REACTIONS (8)
  - ABDOMINAL DISTENSION [None]
  - ASTHENIA [None]
  - GASTRIC DISORDER [None]
  - GASTRIC ULCER [None]
  - HEART RATE INCREASED [None]
  - HELICOBACTER INFECTION [None]
  - NASOPHARYNGITIS [None]
  - PYREXIA [None]
